FAERS Safety Report 5273094-1 (Version None)
Quarter: 2007Q1

REPORT INFORMATION
  Report Type: 
  Country: None (occurrence: None)
  Receive Date: 20070322
  Receipt Date: 20070307
  Transmission Date: 20070707
  Serious: Yes (Hospitalization, Other)
  Sender: FDA-Public Use
  Company Number: US-PFIZER INC-2006150036

PATIENT
  Sex: Female
  Weight: 93.9 kg

DRUGS (3)
  1. BEXTRA [Suspect]
     Indication: PAIN
     Route: 048
  2. BEXTRA [Suspect]
     Indication: INFLAMMATION
  3. BEXTRA [Suspect]
     Indication: ANKYLOSING SPONDYLITIS

REACTIONS (3)
  - DEPRESSION [None]
  - MYOCARDIAL INFARCTION [None]
  - SCAR [None]
